FAERS Safety Report 8161653-8 (Version None)
Quarter: 2012Q1

REPORT INFORMATION
  Report Type: 
  Country: None (occurrence: None)
  Receive Date: 20120224
  Receipt Date: 20120221
  Transmission Date: 20120608
  Serious: Yes (Hospitalization)
  Sender: FDA-Public Use
  Company Number: ES-PFIZER INC-2012046537

PATIENT
  Age: 71 Year
  Sex: Female

DRUGS (8)
  1. ASPIRIN [Concomitant]
     Dosage: 300 MG, 1X/DAY
     Route: 048
     Dates: start: 20060101
  2. LORAZEPAM [Concomitant]
     Dosage: 1 MG, 1X/DAY
     Route: 048
     Dates: start: 20101001
  3. SERTRALINE HYDROCHLORIDE [Concomitant]
     Dosage: UNK
     Route: 048
     Dates: start: 20060101
  4. ATORVASTATIN CALCIUM [Suspect]
     Indication: DYSLIPIDAEMIA
     Dosage: 20 MG, 1X/DAY
     Route: 048
     Dates: start: 20060101, end: 20111012
  5. OMEPRAZOLE [Concomitant]
     Indication: PROPHYLAXIS
     Dosage: 20 MG, 1X/DAY
     Route: 048
     Dates: start: 20100401
  6. SINEMET [Concomitant]
     Indication: PARKINSONISM
     Dosage: 1 DF, 3X/DAY
     Route: 048
     Dates: start: 20100401
  7. INDAPAMIDE [Interacting]
     Indication: HYPERTENSION
     Dosage: 2.5 MG, 1X/DAY
     Route: 048
     Dates: start: 20101001, end: 20111012
  8. PRAMIPEXOLE DIHYDROCHLORIDE [Concomitant]
     Indication: PARKINSONISM
     Dosage: UNK
     Route: 048
     Dates: start: 20100401

REACTIONS (7)
  - RHABDOMYOLYSIS [None]
  - HYPOKALAEMIA [None]
  - DRUG INTERACTION [None]
  - HYPOMAGNESAEMIA [None]
  - HYPONATRAEMIA [None]
  - MYOPATHY [None]
  - METABOLIC ALKALOSIS [None]
